FAERS Safety Report 12712296 (Version 1)
Quarter: 2016Q3

REPORT INFORMATION
  Report Type: Report from Study
  Country: US (occurrence: US)
  Receive Date: 20160902
  Receipt Date: 20160902
  Transmission Date: 20161109
  Serious: Yes (Hospitalization)
  Sender: FDA-Public Use
  Company Number: US-B.I. PHARMACEUTICALS,INC./RIDGEFIELD-2016-BI-40332II

PATIENT
  Age: 64 Year
  Sex: Male

DRUGS (2)
  1. BIBF 1120 [Suspect]
     Active Substance: NINTEDANIB
     Indication: NEUROENDOCRINE CARCINOMA
     Dosage: 400 MG
     Route: 048
     Dates: end: 20160809
  2. BIBF 1120 [Suspect]
     Active Substance: NINTEDANIB
     Indication: CARCINOID TUMOUR
     Dosage: 400 MG
     Route: 048
     Dates: start: 20160323, end: 20160616

REACTIONS (2)
  - Lung infection [Recovered/Resolved with Sequelae]
  - Bradycardia [Unknown]

NARRATIVE: CASE EVENT DATE: 20160616
